FAERS Safety Report 9776278 (Version 1)
Quarter: 2013Q4

REPORT INFORMATION
  Report Type: Spontaneous
  Country: US (occurrence: US)
  Receive Date: 20131220
  Receipt Date: 20131220
  Transmission Date: 20140711
  Serious: Yes (Hospitalization)
  Sender: FDA-Public Use
  Company Number: US-ABBVIE-13P-163-1179756-00

PATIENT
  Sex: Female

DRUGS (1)
  1. SYNTHROID [Suspect]
     Indication: PRODUCT USED FOR UNKNOWN INDICATION

REACTIONS (8)
  - Thyroid function test abnormal [Unknown]
  - Neuropathy peripheral [Unknown]
  - Depression [Unknown]
  - Headache [Unknown]
  - Hot flush [Unknown]
  - Somnolence [Unknown]
  - Temperature regulation disorder [Unknown]
  - Vision blurred [Unknown]
